FAERS Safety Report 9125004 (Version 2)
Quarter: 2013Q2

REPORT INFORMATION
  Report Type: Spontaneous
  Country: FR (occurrence: FR)
  Receive Date: 20130117
  Receipt Date: 20130419
  Transmission Date: 20140414
  Serious: No
  Sender: FDA-Public Use
  Company Number: FR-ELI_LILLY_AND_COMPANY-FR201301003208

PATIENT
  Age: 60 Year
  Sex: Female
  Weight: 74 kg

DRUGS (5)
  1. QVAR [Concomitant]
  2. FORSTEO [Suspect]
     Indication: OSTEOPOROSIS
     Dosage: 20 UG, UNK
     Route: 058
     Dates: start: 20120401
  3. UVEDOSE [Concomitant]
  4. FORADIL [Concomitant]
  5. TRANXENE [Concomitant]

REACTIONS (3)
  - Spinal fracture [Unknown]
  - Rib fracture [Not Recovered/Not Resolved]
  - Fall [Unknown]
